FAERS Safety Report 18063056 (Version 1)
Quarter: 2020Q3

REPORT INFORMATION
  Report Type: Report from Study
  Country: None (occurrence: PR)
  Receive Date: 20200724
  Receipt Date: 20200724
  Transmission Date: 20201103
  Serious: Yes (Other)
  Sender: FDA-Public Use
  Company Number: PR-ABBVIE-20K-131-3493091-00

PATIENT
  Sex: Female
  Weight: 52.21 kg

DRUGS (5)
  1. VITAMIN B [Concomitant]
     Active Substance: VITAMIN B
     Indication: VITAMIN SUPPLEMENTATION
     Route: 048
     Dates: start: 202003
  2. VITAMIN D [Concomitant]
     Active Substance: VITAMIN D NOS
     Indication: VITAMIN SUPPLEMENTATION
     Route: 048
  3. HUMIRA [Suspect]
     Active Substance: ADALIMUMAB
     Indication: CROHN^S DISEASE
     Dosage: 40MG/0.8ML
     Route: 058
     Dates: start: 2009, end: 2011
  4. HUMIRA [Suspect]
     Active Substance: ADALIMUMAB
     Dosage: 40MG/0.8ML
     Route: 058
     Dates: start: 2013, end: 202005
  5. HUMIRA [Suspect]
     Active Substance: ADALIMUMAB
     Dosage: 40MG/0.4ML
     Route: 058
     Dates: start: 202005

REACTIONS (8)
  - Nausea [Recovering/Resolving]
  - Scar [Unknown]
  - Migraine [Recovering/Resolving]
  - Intestinal resection [Unknown]
  - Cold sweat [Recovering/Resolving]
  - Abdominal pain [Recovering/Resolving]
  - Gastritis [Recovering/Resolving]
  - Ear operation [Recovered/Resolved]

NARRATIVE: CASE EVENT DATE: 2009
